FAERS Safety Report 6779495-4 (Version None)
Quarter: 2010Q2

REPORT INFORMATION
  Report Type: 
  Country: None (occurrence: None)
  Receive Date: 20100618
  Receipt Date: 20100607
  Transmission Date: 20101027
  Serious: Yes (Hospitalization)
  Sender: FDA-Public Use
  Company Number: DE-SANOFI-AVENTIS-A01200903319

PATIENT
  Age: 78 Year
  Sex: Female
  Weight: 53 kg

DRUGS (13)
  1. FENTANYL [Suspect]
     Route: 062
     Dates: start: 20081101
  2. ISCOVER [Interacting]
     Dosage: UNIT DOSE: 75 MG
     Route: 048
     Dates: start: 20080601, end: 20090101
  3. SUNITINIB MALATE [Suspect]
     Dosage: UNIT DOSE: 50 MG
     Route: 048
     Dates: start: 20081022, end: 20081119
  4. SUNITINIB MALATE [Suspect]
     Dosage: UNIT DOSE: 50 MG
     Route: 048
     Dates: start: 20081203, end: 20081230
  5. DICLOFENAC RESINATE [Suspect]
     Dosage: UNIT DOSE: 75 MG
     Route: 048
     Dates: start: 20081101, end: 20081230
  6. EMBOLEX [Interacting]
     Indication: THROMBOSIS PROPHYLAXIS
     Route: 058
     Dates: start: 20081101, end: 20081230
  7. AMITRIPTYLINE [Suspect]
     Route: 048
     Dates: start: 20080601
  8. AMLODIPINE [Suspect]
     Route: 048
     Dates: start: 20060101
  9. DEKRISTOL [Suspect]
     Indication: OSTEOPOROSIS PROPHYLAXIS
     Route: 048
     Dates: start: 20081101, end: 20081228
  10. MEMANTINE HCL [Suspect]
     Indication: DEMENTIA ALZHEIMER'S TYPE
     Route: 048
     Dates: start: 20080601
  11. NOVALGIN [Suspect]
     Dosage: DOSE TEXT: 30 DROPS THREE DAILY
     Route: 048
     Dates: start: 20081101
  12. PANTOZOL [Suspect]
     Route: 048
     Dates: start: 20081101
  13. CLEXANE [Concomitant]
     Indication: THROMBOSIS PROPHYLAXIS
     Route: 058
     Dates: start: 20081230

REACTIONS (4)
  - DRUG INTERACTION [None]
  - LEUKOPENIA [None]
  - OFF LABEL USE [None]
  - UPPER GASTROINTESTINAL HAEMORRHAGE [None]
